FAERS Safety Report 5581399-X (Version None)
Quarter: 2007Q4

REPORT INFORMATION
  Report Type: 
  Country: None (occurrence: None)
  Receive Date: 20071231
  Receipt Date: 20071217
  Transmission Date: 20080405
  Serious: Yes (Hospitalization)
  Sender: FDA-Public Use
  Company Number: CERZ-12000

PATIENT
  Age: 49 Year
  Sex: Male
  Weight: 79.4 kg

DRUGS (12)
  1. CEREZYME [Suspect]
     Indication: GAUCHER'S DISEASE
     Dosage: 5800 U, Q2W, INTRAVENOUS; 4400 U, Q2W, INTRAVENOUS
     Route: 042
     Dates: start: 19980326, end: 20060701
  2. CEREZYME [Suspect]
     Indication: GAUCHER'S DISEASE
     Dosage: 5800 U, Q2W, INTRAVENOUS; 4400 U, Q2W, INTRAVENOUS
     Route: 042
     Dates: start: 20060724
  3. ALBUTEROL [Concomitant]
  4. BACTRIM [Concomitant]
  5. CELLCEPT [Concomitant]
  6. CLONIDINE HYDROCHLORIDE (CLONIDINE HYDROCHLORIDE) TABLET [Concomitant]
  7. DIOVAN TABLET [Concomitant]
  8. LIPITOR [Concomitant]
  9. LOPRESSOR [Concomitant]
  10. NEORAL [Concomitant]
  11. PREDNISONE (PREDNISONE) TABLET [Concomitant]
  12. SYNTHROID (LEVOTHYROXINE SODIUM) TABLET [Concomitant]

REACTIONS (10)
  - ANOSMIA [None]
  - CLAVICLE FRACTURE [None]
  - DEAFNESS UNILATERAL [None]
  - FALL [None]
  - INTRACRANIAL HYPOTENSION [None]
  - MULTIPLE FRACTURES [None]
  - OXYGEN SATURATION DECREASED [None]
  - RIB FRACTURE [None]
  - SKULL FRACTURE [None]
  - TINNITUS [None]
